FAERS Safety Report 4700508-5 (Version None)
Quarter: 2005Q2

REPORT INFORMATION
  Report Type: 
  Country: None (occurrence: None)
  Receive Date: 20050627
  Receipt Date: 20050617
  Transmission Date: 20051028
  Serious: Yes (Other)
  Sender: FDA-Public Use
  Company Number: PHBS2005BE08905

PATIENT
  Age: 47 Year
  Sex: Female

DRUGS (5)
  1. ZOMETA [Suspect]
     Indication: MULTIPLE MYELOMA
     Route: 042
  2. VINCRISTINE + ADRIAMYCIN + DEXAMETHASONE [Concomitant]
     Route: 065
  3. MELPHALAN [Concomitant]
     Dosage: HIGH DOSES
     Route: 065
  4. BONE MARROW TRANSPLANT [Concomitant]
     Dosage: AUTOLOGOUS STEM CELL TRANSPLANT
     Route: 065
  5. INTERFERON [Concomitant]
     Route: 065

REACTIONS (4)
  - ASEPTIC NECROSIS BONE [None]
  - BONE DISORDER [None]
  - SURGERY [None]
  - TOOTH EXTRACTION [None]
